FAERS Safety Report 5584658-X (Version None)
Quarter: 2008Q1

REPORT INFORMATION
  Report Type: 
  Country: None (occurrence: None)
  Receive Date: 20080103
  Receipt Date: 20071219
  Transmission Date: 20080703
  Serious: Yes (Death)
  Sender: FDA-Public Use
  Company Number: 2007002497

PATIENT
  Age: 46 Year
  Sex: Male

DRUGS (1)
  1. TARCEVA [Suspect]
     Dosage: 150 MG/100 MG,ORAL
     Route: 048
     Dates: start: 20060802, end: 20060901

REACTIONS (1)
  - RASH [None]
